FAERS Safety Report 9147377 (Version 1)
Quarter: 2013Q1

REPORT INFORMATION
  Report Type: Spontaneous
  Country: US (occurrence: US)
  Receive Date: 20130307
  Receipt Date: 20130307
  Transmission Date: 20140127
  Serious: Yes (Hospitalization, Other)
  Sender: FDA-Public Use
  Company Number: US-MEDICIS-2013P1002719

PATIENT
  Age: 9 Day
  Sex: Female

DRUGS (5)
  1. FLECAINIDE [Suspect]
     Indication: TACHYCARDIA
     Route: 048
  2. FLECAINIDE [Suspect]
     Indication: TACHYCARDIA
     Route: 048
  3. AMIODARONE [Concomitant]
     Indication: TACHYCARDIA
  4. AMIODARONE [Concomitant]
     Indication: TACHYCARDIA
  5. PROPRANOLOL [Concomitant]
     Indication: TACHYCARDIA

REACTIONS (3)
  - Toxicity to various agents [Recovered/Resolved]
  - Bundle branch block right [Recovered/Resolved]
  - Tachycardia [Recovered/Resolved]
